FAERS Safety Report 11152711 (Version 4)
Quarter: 2015Q3

REPORT INFORMATION
  Report Type: Report from Study
  Country: DE (occurrence: DE)
  Receive Date: 20150601
  Receipt Date: 20150708
  Transmission Date: 20151125
  Serious: Yes (Death, Hospitalization)
  Sender: FDA-Public Use
  Company Number: DE-B.I. PHARMACEUTICALS,INC./RIDGEFIELD-2015-BI-01425DE

PATIENT
  Age: 56 Year
  Sex: Female
  Weight: 72 kg

DRUGS (2)
  1. GILOTRIF [Suspect]
     Active Substance: AFATINIB
     Dosage: 40 MG
     Route: 048
     Dates: end: 20150210
  2. GILOTRIF [Suspect]
     Active Substance: AFATINIB
     Indication: NON-SMALL CELL LUNG CANCER
     Dosage: 40 MG
     Route: 048
     Dates: start: 20141210, end: 20150129

REACTIONS (9)
  - Malignant neoplasm progression [Fatal]
  - Subileus [Unknown]
  - Pancreatitis [Unknown]
  - Nausea [Recovered/Resolved]
  - Bone pain [Unknown]
  - Skin induration [Unknown]
  - Diarrhoea [Recovered/Resolved]
  - Diarrhoea [Recovered/Resolved]
  - Skin induration [Recovered/Resolved]

NARRATIVE: CASE EVENT DATE: 20141219
